FAERS Safety Report 6071015-5 (Version None)
Quarter: 2009Q1

REPORT INFORMATION
  Report Type: 
  Country: None (occurrence: None)
  Receive Date: 20090209
  Receipt Date: 20090128
  Transmission Date: 20090719
  Serious: Yes (Hospitalization)
  Sender: FDA-Public Use
  Company Number: B0556391A

PATIENT
  Age: 59 Year
  Sex: Male

DRUGS (2)
  1. ARIXTRA [Suspect]
     Route: 058
     Dates: start: 20080623, end: 20080705
  2. VEINAMITOL [Concomitant]
     Indication: VENOUS INSUFFICIENCY
     Dosage: 1UNIT PER DAY
     Route: 048
     Dates: start: 20080704, end: 20080705

REACTIONS (10)
  - ECZEMA [None]
  - EOSINOPHILIA [None]
  - EYELID OEDEMA [None]
  - FACE OEDEMA [None]
  - HEPATIC ENZYME INCREASED [None]
  - HEPATOCELLULAR INJURY [None]
  - RASH [None]
  - RASH MACULO-PAPULAR [None]
  - TOXIC SKIN ERUPTION [None]
  - URTICARIA [None]
